FAERS Safety Report 13860670 (Version 1)
Quarter: 2017Q3

REPORT INFORMATION
  Report Type: Report from Study
  Country: JP (occurrence: JP)
  Receive Date: 20170811
  Receipt Date: 20170811
  Transmission Date: 20171127
  Serious: Yes (Hospitalization)
  Sender: FDA-Public Use
  Company Number: JP-JNJFOC-20161015228

PATIENT
  Age: 68 Year
  Sex: Male
  Weight: 59 kg

DRUGS (6)
  1. XARELTO [Suspect]
     Active Substance: RIVAROXABAN
     Indication: CEREBROVASCULAR ACCIDENT PROPHYLAXIS
     Route: 048
     Dates: start: 20140620, end: 20160102
  2. AMLODIN [Concomitant]
     Active Substance: AMLODIPINE BESYLATE
     Route: 048
  3. ACTOS [Concomitant]
     Active Substance: PIOGLITAZONE HYDROCHLORIDE
     Route: 048
  4. BLOPRESS [Concomitant]
     Active Substance: CANDESARTAN CILEXETIL
     Route: 048
  5. BLOPRESS [Concomitant]
     Active Substance: CANDESARTAN CILEXETIL
     Route: 048
     Dates: end: 20160102
  6. XARELTO [Suspect]
     Active Substance: RIVAROXABAN
     Indication: ATRIAL FIBRILLATION
     Route: 048
     Dates: start: 20140620, end: 20160102

REACTIONS (2)
  - Anaemia [Recovered/Resolved]
  - Gastric cancer [Recovered/Resolved]

NARRATIVE: CASE EVENT DATE: 20160102
